FAERS Safety Report 9548420 (Version 15)
Quarter: 2018Q3

REPORT INFORMATION
  Report Type: Spontaneous
  Country: CA (occurrence: CA)
  Receive Date: 20130924
  Receipt Date: 20180822
  Transmission Date: 20181010
  Serious: Yes (Other)
  Sender: FDA-Public Use
  Company Number: CA-ROCHE-1279685

PATIENT
  Age: 61 Year
  Sex: Female
  Weight: 88 kg

DRUGS (10)
  1. XOLAIR [Suspect]
     Active Substance: OMALIZUMAB
     Indication: ASTHMA
     Route: 058
     Dates: start: 20130527
  2. XOLAIR [Suspect]
     Active Substance: OMALIZUMAB
     Route: 058
     Dates: start: 20140403
  3. XOLAIR [Suspect]
     Active Substance: OMALIZUMAB
     Route: 058
     Dates: start: 20180620
  4. ALVESCO [Suspect]
     Active Substance: CICLESONIDE
     Dosage: 2 DF, PRN
     Route: 055
  5. XOLAIR [Suspect]
     Active Substance: OMALIZUMAB
     Route: 058
     Dates: start: 20180103
  6. ADVAIR HFA [Concomitant]
     Active Substance: FLUTICASONE PROPIONATE\SALMETEROL XINAFOATE
     Indication: PRODUCT USED FOR UNKNOWN INDICATION
     Route: 065
  7. XOLAIR [Suspect]
     Active Substance: OMALIZUMAB
     Route: 058
     Dates: start: 20150305
  8. SPIRIVA [Concomitant]
     Active Substance: TIOTROPIUM BROMIDE MONOHYDRATE
     Indication: PRODUCT USED FOR UNKNOWN INDICATION
     Route: 065
  9. ALVESCO [Suspect]
     Active Substance: CICLESONIDE
     Indication: PRODUCT USED FOR UNKNOWN INDICATION
     Dosage: UNK
     Route: 065
  10. VENTOLINE [Concomitant]
     Active Substance: ALBUTEROL
     Indication: PRODUCT USED FOR UNKNOWN INDICATION
     Route: 065

REACTIONS (27)
  - Vision blurred [Unknown]
  - Weight increased [Unknown]
  - Nasopharyngitis [Unknown]
  - Respiratory disorder [Unknown]
  - Vitamin D deficiency [Unknown]
  - Abdominal pain [Recovering/Resolving]
  - Sputum discoloured [Unknown]
  - Gouty arthritis [Recovered/Resolved]
  - Nervousness [Recovering/Resolving]
  - Asthma [Recovering/Resolving]
  - Drug ineffective [Unknown]
  - Coeliac disease [Unknown]
  - Productive cough [Unknown]
  - Hypocalcaemia [Unknown]
  - Dizziness [Unknown]
  - Swelling [Unknown]
  - Allergy to animal [Unknown]
  - Blood pressure systolic increased [Not Recovered/Not Resolved]
  - Influenza [Unknown]
  - Herpes zoster [Unknown]
  - Swelling face [Unknown]
  - Hypersensitivity [Not Recovered/Not Resolved]
  - Diverticulitis [Recovered/Resolved]
  - Lung infection [Recovering/Resolving]
  - Cerebrovascular accident [Recovering/Resolving]
  - Hernia [Unknown]
  - Fatigue [Recovering/Resolving]

NARRATIVE: CASE EVENT DATE: 201306
